FAERS Safety Report 4714739-1 (Version None)
Quarter: 2005Q3

REPORT INFORMATION
  Report Type: 
  Country: None (occurrence: None)
  Receive Date: 20050715
  Receipt Date: 20050706
  Transmission Date: 20060218
  Serious: Yes (Hospitalization)
  Sender: FDA-Public Use
  Company Number: FR-SOLVAY-00205002243

PATIENT
  Age: 27 Year
  Sex: Female

DRUGS (8)
  1. NITRODERM TTS5 [Concomitant]
     Indication: ILL-DEFINED DISORDER
     Dosage: DAILY DOSE:  UNKNOWN
     Route: 065
     Dates: start: 20050101
  2. COVERSYL [Suspect]
     Indication: ILL-DEFINED DISORDER
     Dosage: DAILY DOSE: 2 MILLIGRAM(S)
     Route: 048
     Dates: start: 20030101
  3. EPIVIR [Suspect]
     Indication: ILL-DEFINED DISORDER
     Dosage: DAILY DOSE: 1 DOSAGE FORM
     Route: 048
     Dates: start: 20020902
  4. UN-ALFA [Concomitant]
     Indication: ILL-DEFINED DISORDER
     Dosage: DAILY DOSE:  UNKNOWN
     Route: 065
  5. VIRACEPT [Suspect]
     Indication: ILL-DEFINED DISORDER
     Dosage: DAILY DOSE: 2500 MILLIGRAM(S)
     Route: 048
     Dates: start: 20020808
  6. AMLODIPINE BESYLATE [Concomitant]
     Indication: ILL-DEFINED DISORDER
     Dosage: DAILY DOSE:  UNKNOWN
     Route: 065
  7. SUSTIVA [Suspect]
     Indication: ILL-DEFINED DISORDER
     Dosage: DAILY DOSE: 600 MILLIGRAM(S)
     Route: 048
     Dates: start: 20020808
  8. LASIX [Concomitant]
     Indication: ILL-DEFINED DISORDER
     Dosage: DAILY DOSE:  UNKNOWN
     Route: 065

REACTIONS (5)
  - MITRAL VALVE INCOMPETENCE [None]
  - MYOCARDITIS [None]
  - PLEURAL EFFUSION [None]
  - PULMONARY HYPERTENSION [None]
  - PULMONARY OEDEMA [None]
